FAERS Safety Report 4635607-X (Version None)
Quarter: 2005Q2

REPORT INFORMATION
  Report Type: 
  Country: None (occurrence: None)
  Receive Date: 20050413
  Receipt Date: 20050329
  Transmission Date: 20051028
  Serious: No
  Sender: FDA-Public Use
  Company Number: 2004SE05631

PATIENT
  Age: 16 Year
  Sex: Female
  Weight: 75.8 kg

DRUGS (4)
  1. SPIROCORT [Suspect]
     Dates: start: 20030101, end: 20040826
  2. SPIROCORT [Suspect]
     Dosage: 400 UG DAILY IH
     Route: 055
     Dates: start: 20041001, end: 20041001
  3. OXIS [Suspect]
     Dates: start: 20030318, end: 20040826
  4. BRICANYL [Concomitant]

REACTIONS (7)
  - ASTHMA [None]
  - CONDITION AGGRAVATED [None]
  - FORCED EXPIRATORY VOLUME DECREASED [None]
  - OBSTRUCTION [None]
  - PULMONARY FUNCTION TEST DECREASED [None]
  - REACTION TO MEDICAL AGENT PRESERVATIVES [None]
  - VASCULAR OCCLUSION [None]
